FAERS Safety Report 7514483-1 (Version None)
Quarter: 2011Q2

REPORT INFORMATION
  Report Type: 
  Country: None (occurrence: None)
  Receive Date: 20110601
  Receipt Date: 20101102
  Transmission Date: 20111010
  Serious: No
  Sender: FDA-Public Use
  Company Number: US-BAYER-201041148NA

PATIENT
  Sex: Female

DRUGS (2)
  1. BEYAZ [Suspect]
     Indication: MENSTRUATION IRREGULAR
  2. BEYAZ [Suspect]
     Indication: CONTRACEPTION
     Dosage: HAS BEEN TAKING 2 TABLETS PER DAY FOR THE PAST 8 DAYS
     Dates: start: 20100101

REACTIONS (1)
  - AMENORRHOEA [None]
